FAERS Safety Report 22010157 (Version 1)
Quarter: 2023Q1

REPORT INFORMATION
  Report Type: Spontaneous
  Country: NL (occurrence: NL)
  Receive Date: 20230220
  Receipt Date: 20230220
  Transmission Date: 20230418
  Serious: Yes (Hospitalization)
  Sender: FDA-Public Use
  Company Number: None

PATIENT
  Sex: Male
  Weight: 83 kg

DRUGS (1)
  1. NAPROXEN [Suspect]
     Active Substance: NAPROXEN
     Indication: Dysuria
     Dosage: 750 MILLIGRAM DAILY;  BRAND NAME NOT SPECIFIED , 3* / DAY 1 PIECES,
     Route: 065
     Dates: start: 20221205, end: 20230109

REACTIONS (1)
  - Renal disorder [Recovered/Resolved]
